FAERS Safety Report 5024853-1 (Version None)
Quarter: 2006Q2

REPORT INFORMATION
  Report Type: 
  Country: None (occurrence: None)
  Receive Date: 20060607
  Receipt Date: 20060531
  Transmission Date: 20061013
  Serious: Yes (Hospitalization, Other)
  Sender: FDA-Public Use
  Company Number: HQWYE615901JUN06

PATIENT
  Age: 68 Year
  Sex: Female

DRUGS (6)
  1. CORDARONE [Suspect]
     Dosage: 200 MG 1X PER 1 DAY ORAL
     Route: 048
     Dates: start: 20060228, end: 20060421
  2. LEVOTHYROXINE SODIUM [Suspect]
     Dosage: 125 UG 1X PER 1 DAY ORAL
     Route: 048
  3. PREVISCAN (FLUINDIONE,) [Suspect]
     Dosage: SEE IMAGE
     Route: 048
     Dates: start: 20060224, end: 20060421
  4. PREVISCAN (FLUINDIONE,) [Suspect]
     Dosage: SEE IMAGE
     Route: 048
     Dates: start: 20060424
  5. OXYBUTYNIN CHLORIDE [Concomitant]
  6. DIGOXIN [Concomitant]

REACTIONS (3)
  - ANTICOAGULATION DRUG LEVEL ABOVE THERAPEUTIC [None]
  - DRUG INTERACTION [None]
  - INTERNATIONAL NORMALISED RATIO INCREASED [None]
